FAERS Safety Report 6473032-X (Version None)
Quarter: 2009Q4

REPORT INFORMATION
  Report Type: 
  Country: None (occurrence: None)
  Receive Date: 20091204
  Receipt Date: 20091126
  Transmission Date: 20100525
  Serious: Yes (Hospitalization)
  Sender: FDA-Public Use
  Company Number: DE-BIOGENIDEC-2009BI038991

PATIENT
  Age: 37 Year
  Sex: Male
  Weight: 72 kg

DRUGS (1)
  1. AVONEX [Suspect]
     Indication: RELAPSING-REMITTING MULTIPLE SCLEROSIS
     Route: 030
     Dates: start: 20090617

REACTIONS (5)
  - BLOOD ZINC DECREASED [None]
  - BODY TEMPERATURE INCREASED [None]
  - DYSPEPSIA [None]
  - LIGAMENT SPRAIN [None]
  - PELVIC FRACTURE [None]
